FAERS Safety Report 15264815 (Version 1)
Quarter: 2018Q3

REPORT INFORMATION
  Report Type: Spontaneous
  Country: US (occurrence: US)
  Receive Date: 20180810
  Receipt Date: 20180810
  Transmission Date: 20181010
  Serious: Yes (Other)
  Sender: FDA-Public Use
  Company Number: US-PERRIGO-18US007727

PATIENT
  Sex: Female

DRUGS (1)
  1. COMPLETE LICE TREATMENT KIT [Suspect]
     Active Substance: PIPERONYL BUTOXIDE\PYRETHRUM EXTRACT
     Indication: LICE INFESTATION
     Dosage: UNKNOWN, SINGLE
     Route: 061
     Dates: start: 20180122, end: 20180122

REACTIONS (6)
  - Eye swelling [Recovered/Resolved with Sequelae]
  - Eye injury [Recovered/Resolved with Sequelae]
  - Eye pain [Recovered/Resolved with Sequelae]
  - Conjunctivitis [Recovered/Resolved with Sequelae]
  - Eye irritation [Recovered/Resolved with Sequelae]
  - Visual impairment [Recovered/Resolved with Sequelae]

NARRATIVE: CASE EVENT DATE: 20180122
